FAERS Safety Report 7271516-8 (Version None)
Quarter: 2011Q1

REPORT INFORMATION
  Report Type: 
  Country: None (occurrence: None)
  Receive Date: 20110203
  Receipt Date: 20101228
  Transmission Date: 20110831
  Serious: Yes (Hospitalization)
  Sender: FDA-Public Use
  Company Number: US-BAYER-200934011NA

PATIENT
  Sex: Female
  Weight: 82 kg

DRUGS (6)
  1. ZOLOFT [Concomitant]
     Dosage: 100 MG (DAILY DOSE), , ORAL
     Route: 048
  2. OCELLA [Suspect]
     Indication: PRODUCT USED FOR UNKNOWN INDICATION
     Dates: start: 20070301, end: 20070915
  3. YASMIN [Suspect]
     Indication: PRODUCT USED FOR UNKNOWN INDICATION
     Route: 048
     Dates: start: 20070301, end: 20070915
  4. NEXIUM [Concomitant]
     Dosage: 40 MG (DAILY DOSE), , ORAL
     Route: 048
  5. SYMBYAX [Concomitant]
  6. YAZ [Suspect]
     Indication: PRODUCT USED FOR UNKNOWN INDICATION
     Dosage: UNK
     Route: 048
     Dates: start: 20070301, end: 20070901

REACTIONS (7)
  - THROMBOPHLEBITIS SUPERFICIAL [None]
  - PAIN [None]
  - OEDEMA PERIPHERAL [None]
  - DYSPNOEA [None]
  - PAIN IN EXTREMITY [None]
  - PULMONARY EMBOLISM [None]
  - CHEST PAIN [None]
